FAERS Safety Report 5880206-5 (Version None)
Quarter: 2008Q3

REPORT INFORMATION
  Report Type: 
  Country: None (occurrence: None)
  Receive Date: 20080912
  Receipt Date: 20080902
  Transmission Date: 20090109
  Serious: Yes (Life-Threatening)
  Sender: FDA-Public Use
  Company Number: FR-PFIZER INC-2008074139

PATIENT
  Sex: Male

DRUGS (5)
  1. ZOLOFT [Suspect]
     Route: 048
     Dates: start: 20080615
  2. NEXIUM [Suspect]
     Route: 048
     Dates: start: 20080615, end: 20080809
  3. DOLIPRANE [Suspect]
     Route: 048
     Dates: start: 20080615
  4. COVERSYL [Suspect]
     Route: 048
     Dates: start: 20080615, end: 20080807
  5. PREVISCAN [Suspect]
     Dosage: TEXT:1 DF DAILY EVERY DAY TDD:1 DF
     Route: 048
     Dates: start: 20080806

REACTIONS (1)
  - NEUTROPENIA [None]
